FAERS Safety Report 8837052 (Version 3)
Quarter: 2013Q1

REPORT INFORMATION
  Report Type: Report from Study
  Country: FR (occurrence: FR)
  Receive Date: 20121012
  Receipt Date: 20130225
  Transmission Date: 20140127
  Serious: Yes (Hospitalization, Other)
  Sender: FDA-Public Use
  Company Number: FR-NOVOPROD-361473

PATIENT
  Age: 50 Year
  Sex: Female
  Weight: 92 kg

DRUGS (2)
  1. LIRAGLUTIDE FLEXPEN [Suspect]
     Indication: TYPE 2 DIABETES MELLITUS
     Dosage: 1.8 MG, QD
     Route: 058
     Dates: start: 20101114
  2. METFORMINE [Concomitant]
     Route: 048
     Dates: start: 201011

REACTIONS (2)
  - Incisional hernia [Recovering/Resolving]
  - Hepatic steatosis [Unknown]
